FAERS Safety Report 4373869-7 (Version None)
Quarter: 2004Q2

REPORT INFORMATION
  Report Type: 
  Country: None (occurrence: None)
  Receive Date: 20040609
  Receipt Date: 20040601
  Transmission Date: 20050107
  Serious: Yes (Hospitalization)
  Sender: FDA-Public Use
  Company Number: DE-JNJFOC-20040600409

PATIENT
  Age: 46 Year
  Sex: Female
  Weight: 61 kg

DRUGS (7)
  1. REMICADE [Suspect]
     Indication: ANKYLOSING SPONDYLITIS
     Route: 042
  2. OSSOFORTIN [Concomitant]
  3. OSSOFORTIN [Concomitant]
  4. OSSOFORTIN [Concomitant]
     Indication: OSTEOPOROSIS
  5. CYTOTEC [Concomitant]
     Indication: ULCER
     Route: 049
     Dates: start: 20040214
  6. VOLTAREN [Concomitant]
     Indication: ANKYLOSING SPONDYLITIS
  7. CORNEREGEL EYE DROPS [Concomitant]
     Dosage: 3 TO 4 TIMES DAILY.

REACTIONS (1)
  - HOSPITALISATION [None]
